FAERS Safety Report 4457749-4 (Version None)
Quarter: 2004Q3

REPORT INFORMATION
  Report Type: 
  Country: None (occurrence: None)
  Receive Date: 20040831
  Receipt Date: 20040602
  Transmission Date: 20050211
  Serious: No
  Sender: FDA-Public Use
  Company Number: FABR-10619

PATIENT
  Age: 47 Year
  Sex: Male
  Weight: 79.5 kg

DRUGS (2)
  1. FABRAZYME [Suspect]
     Indication: FABRY'S DISEASE
     Dosage: 70 MG, IV
     Route: 042
     Dates: start: 20040504
  2. ASPIRIN [Concomitant]

REACTIONS (2)
  - DIZZINESS [None]
  - NYSTAGMUS [None]
